FAERS Safety Report 6804150-1 (Version None)
Quarter: 2010Q2

REPORT INFORMATION
  Report Type: 
  Country: None (occurrence: None)
  Receive Date: 20100628
  Receipt Date: 20070323
  Transmission Date: 20101027
  Serious: No
  Sender: FDA-Public Use
  Company Number: US-PFIZER INC-2006083993

PATIENT
  Sex: Female

DRUGS (2)
  1. XALATAN [Suspect]
     Route: 047
     Dates: start: 20040101
  2. LEVOTHYROXINE SODIUM [Concomitant]
     Indication: THYROID DISORDER

REACTIONS (4)
  - EYE DISORDER [None]
  - EYE IRRITATION [None]
  - EYELID DISORDER [None]
  - VISION BLURRED [None]
